FAERS Safety Report 25192134 (Version 1)
Quarter: 2025Q2

REPORT INFORMATION
  Report Type: Spontaneous
  Country: US (occurrence: None)
  Receive Date: 20250413
  Receipt Date: 20250413
  Transmission Date: 20250717
  Serious: No
  Sender: FDA-CTU
  Company Number: None

PATIENT
  Age: 38 Year
  Sex: Female
  Weight: 85.5 kg

DRUGS (3)
  1. BIMZELX [Suspect]
     Active Substance: BIMEKIZUMAB-BKZX
     Indication: Psoriatic arthropathy
     Route: 058
  2. Prednisone prn flare [Concomitant]
  3. Multivatmin [Concomitant]

REACTIONS (5)
  - Abdominal discomfort [None]
  - Abdominal distension [None]
  - Diarrhoea [None]
  - Mucous stools [None]
  - Injection site reaction [None]

NARRATIVE: CASE EVENT DATE: 20250413
